FAERS Safety Report 16486355 (Version 1)
Quarter: 2019Q2

REPORT INFORMATION
  Report Type: Spontaneous
  Country: US (occurrence: US)
  Receive Date: 20190627
  Receipt Date: 20190627
  Transmission Date: 20190711
  Serious: Yes (Hospitalization)
  Sender: FDA-Public Use
  Company Number: US-ACTELION-A-NJ2019-192149

PATIENT
  Sex: Male

DRUGS (2)
  1. OPSUMIT [Suspect]
     Active Substance: MACITENTAN
     Dosage: 10 MG
     Route: 048
  2. OPSUMIT [Suspect]
     Active Substance: MACITENTAN
     Indication: CARDIOMYOPATHY
     Dosage: UNK
     Route: 048

REACTIONS (3)
  - Product dose omission [Recovered/Resolved]
  - Hospitalisation [Recovered/Resolved]
  - Rehabilitation therapy [Unknown]
